FAERS Safety Report 7459509-9 (Version None)
Quarter: 2011Q2

REPORT INFORMATION
  Report Type: 
  Country: None (occurrence: None)
  Receive Date: 20110505
  Receipt Date: 20110428
  Transmission Date: 20111010
  Serious: Yes (Other)
  Sender: FDA-Public Use
  Company Number: ZA-JNJFOC-20110403381

PATIENT
  Sex: Female

DRUGS (7)
  1. INTEFLORA [Concomitant]
     Dosage: 1/1  60
     Route: 048
  2. CAELYX [Suspect]
     Indication: BREAST CANCER
     Dosage: CYCLE 2
     Route: 042
  3. CAELYX [Suspect]
     Dosage: CYCLE 3
     Route: 042
  4. CAELYX [Suspect]
     Dosage: CYCLE 1, EVERY 4 WEEK
     Route: 042
  5. DURAGESIC [Concomitant]
     Indication: PAIN
     Route: 062
  6. CLINDAMYCIN [Concomitant]
     Dosage: Q 10
     Route: 048
  7. PYRIDOXINE [Concomitant]
     Route: 048

REACTIONS (5)
  - CANDIDIASIS [None]
  - PALMAR-PLANTAR ERYTHRODYSAESTHESIA SYNDROME [None]
  - BLISTER [None]
  - RASH GENERALISED [None]
  - PURULENCE [None]
